FAERS Safety Report 6238466-7 (Version None)
Quarter: 2009Q2

REPORT INFORMATION
  Report Type: 
  Country: None (occurrence: None)
  Receive Date: 20090622
  Receipt Date: 20090620
  Transmission Date: 20091009
  Serious: Yes (Other)
  Sender: FDA-Public Use
  Company Number: US-PFIZER INC-2003123022

PATIENT
  Sex: Female

DRUGS (2)
  1. GEODON [Suspect]
     Indication: SCHIZOPHRENIA
     Route: 065
  2. ATIVAN [Suspect]
     Indication: ANXIETY

REACTIONS (5)
  - AGITATION [None]
  - HYPOTENSION [None]
  - MEMORY IMPAIRMENT [None]
  - SOMNOLENCE [None]
  - SYNCOPE [None]
